FAERS Safety Report 17365004 (Version 2)
Quarter: 2020Q1

REPORT INFORMATION
  Report Type: Spontaneous
  Country: AU (occurrence: AU)
  Receive Date: 20200204
  Receipt Date: 20200324
  Transmission Date: 20200409
  Serious: Yes (Other)
  Sender: FDA-Public Use
  Company Number: AU-ROCHE-2540194

PATIENT
  Sex: Male

DRUGS (5)
  1. VINBLASTINE [Concomitant]
     Active Substance: VINBLASTINE
     Route: 065
     Dates: start: 20090714
  2. CARBOPLATIN. [Suspect]
     Active Substance: CARBOPLATIN
     Indication: PRODUCT USED FOR UNKNOWN INDICATION
     Route: 065
  3. TRAMETINIB [Suspect]
     Active Substance: TRAMETINIB
     Indication: PRODUCT USED FOR UNKNOWN INDICATION
     Route: 065
  4. AVASTIN [Suspect]
     Active Substance: BEVACIZUMAB
     Indication: OPTIC GLIOMA
     Route: 065
     Dates: start: 201710
  5. VINCRISTINE [Concomitant]
     Active Substance: VINCRISTINE
     Route: 065
     Dates: start: 20090714

REACTIONS (11)
  - Astrocytoma [Unknown]
  - Proteinuria [Unknown]
  - Off label use [Unknown]
  - Influenza like illness [Unknown]
  - Acne [Unknown]
  - Pyrexia [Unknown]
  - Dactylitis [Unknown]
  - Hypertension [Unknown]
  - Blood creatine phosphokinase increased [Unknown]
  - Hypersensitivity [Unknown]
  - Intentional product use issue [Unknown]
